FAERS Safety Report 9219666 (Version 1)
Quarter: 2013Q2

REPORT INFORMATION
  Report Type: Report from Study
  Country: FI (occurrence: FI)
  Receive Date: 20130409
  Receipt Date: 20130409
  Transmission Date: 20140414
  Serious: Yes (Other)
  Sender: FDA-Public Use
  Company Number: FI-BAYER-2013-043361

PATIENT
  Sex: Female

DRUGS (1)
  1. LEVONORGESTREL [Suspect]
     Dosage: UNK UNK, CONT
     Route: 015

REACTIONS (3)
  - Uterine perforation [None]
  - Abdominal infection [None]
  - Pregnancy with contraceptive device [None]
